FAERS Safety Report 9597976 (Version 1)
Quarter: 2013Q4

REPORT INFORMATION
  Report Type: Spontaneous
  Country: US (occurrence: US)
  Receive Date: 20131004
  Receipt Date: 20131004
  Transmission Date: 20140711
  Serious: No
  Sender: FDA-Public Use
  Company Number: US-AMGEN-USASP2013022141

PATIENT
  Age: 59 Year
  Sex: Female
  Weight: 99.77 kg

DRUGS (7)
  1. ENBREL [Suspect]
     Indication: PRODUCT USED FOR UNKNOWN INDICATION
     Dosage: 50 MG, QWK
     Route: 058
  2. IBUPROFEN [Concomitant]
     Dosage: 200 MG, UNK
  3. METOPROLOL [Concomitant]
     Dosage: 100 MG, UNK (ER)
  4. NEURONTIN [Concomitant]
     Dosage: 300 MG, UNK
  5. TRAZODONE [Concomitant]
     Dosage: 100 MG, UNK
  6. OMEPRAZOLE [Concomitant]
     Dosage: 20 MG, UNK
  7. BENADRYL ALLERGY SINUS [Concomitant]
     Dosage: UNK

REACTIONS (5)
  - Injection site urticaria [Unknown]
  - Fatigue [Unknown]
  - Dyspnoea [Unknown]
  - Asthenia [Unknown]
  - Pain [Unknown]
